FAERS Safety Report 18485640 (Version 2)
Quarter: 2021Q1

REPORT INFORMATION
  Report Type: Report from Study
  Country: IT (occurrence: IT)
  Receive Date: 20201110
  Receipt Date: 20210119
  Transmission Date: 20210419
  Serious: Yes (Other)
  Sender: FDA-Public Use
  Company Number: IT-TEVA-2020-IT-1845959

PATIENT
  Age: 82 Year
  Sex: Male

DRUGS (3)
  1. TORVAST [Concomitant]
     Active Substance: ATORVASTATIN
     Dosage: 1 DF
     Route: 048
  2. ATENOLOL. [Suspect]
     Active Substance: ATENOLOL
     Indication: HYPERTENSION
     Dosage: 50 MG
     Route: 048
     Dates: start: 20190830, end: 20200830
  3. COUMADIN [Concomitant]
     Active Substance: WARFARIN SODIUM
     Dosage: 1 DF

REACTIONS (2)
  - Hypertensive crisis [Recovering/Resolving]
  - Drug ineffective [Recovering/Resolving]

NARRATIVE: CASE EVENT DATE: 20200829
